FAERS Safety Report 22104636 (Version 1)
Quarter: 2023Q1

REPORT INFORMATION
  Report Type: Spontaneous
  Country: CN (occurrence: CN)
  Receive Date: 20230316
  Receipt Date: 20230316
  Transmission Date: 20230418
  Serious: Yes (Hospitalization)
  Sender: FDA-Public Use
  Company Number: CN-FreseniusKabi-FK202303158

PATIENT
  Age: 33 Year
  Sex: Male

DRUGS (4)
  1. OMEGAVEN [Suspect]
     Active Substance: FISH OIL
     Indication: Large intestine polyp
     Route: 041
     Dates: start: 20201026, end: 20201027
  2. OMEGAVEN [Suspect]
     Active Substance: FISH OIL
     Route: 041
     Dates: start: 20201029
  3. EGG PHOSPHOLIPIDS\GLYCERIN\SOYBEAN OIL [Suspect]
     Active Substance: EGG PHOSPHOLIPIDS\GLYCERIN\SOYBEAN OIL
     Indication: Large intestine polyp
     Route: 041
     Dates: start: 20201026, end: 20201027
  4. EGG PHOSPHOLIPIDS\GLYCERIN\SOYBEAN OIL [Suspect]
     Active Substance: EGG PHOSPHOLIPIDS\GLYCERIN\SOYBEAN OIL
     Route: 041
     Dates: start: 20201029

REACTIONS (3)
  - Temperature intolerance [Recovered/Resolved]
  - Chills [Recovered/Resolved]
  - Pyrexia [Recovered/Resolved]

NARRATIVE: CASE EVENT DATE: 20201027
